FAERS Safety Report 22093399 (Version 1)
Quarter: 2023Q1

REPORT INFORMATION
  Report Type: Spontaneous
  Country: GB (occurrence: GB)
  Receive Date: 20230314
  Receipt Date: 20230314
  Transmission Date: 20230418
  Serious: Yes (Hospitalization)
  Sender: FDA-Public Use
  Company Number: GB-EPIHEALTH-2023-UK-000062

PATIENT
  Age: 70 Year
  Sex: Female

DRUGS (1)
  1. ACYCLOVIR [Suspect]
     Active Substance: ACYCLOVIR
     Indication: Rash
     Dosage: DOES NOT SPECIFIED; ORAL AND THEN SWITCHED TO IV FORMULATION
     Route: 048

REACTIONS (1)
  - Neurotoxicity [Recovered/Resolved]
